FAERS Safety Report 25407887 (Version 2)
Quarter: 2025Q2

REPORT INFORMATION
  Report Type: Spontaneous
  Country: US (occurrence: US)
  Receive Date: 20250606
  Receipt Date: 20250620
  Transmission Date: 20250716
  Serious: No
  Sender: PFIZER
  Company Number: US-PFIZER INC-202500115744

PATIENT
  Age: 75 Year
  Sex: Female

DRUGS (2)
  1. EUCRISA [Suspect]
     Active Substance: CRISABOROLE
     Indication: Dermatitis atopic
     Dosage: APPLY THIN LAYER TO ECZEMA EFFECTED AREAS ONCE DAILY UNTIL RESOLVED, QUANTITY: 100 GRAM
     Route: 061
  2. EUCRISA [Suspect]
     Active Substance: CRISABOROLE
     Indication: Eczema

REACTIONS (2)
  - Drug effect less than expected [Unknown]
  - Condition aggravated [Unknown]
